FAERS Safety Report 22749305 (Version 2)
Quarter: 2023Q4

REPORT INFORMATION
  Report Type: Spontaneous
  Country: DE (occurrence: DE)
  Receive Date: 20230725
  Receipt Date: 20231211
  Transmission Date: 20240110
  Serious: Yes (Other)
  Sender: FDA-Public Use
  Company Number: DE-SANDOZ-SDZ2023DE003434

PATIENT

DRUGS (14)
  1. DEXAMETHASONE [Suspect]
     Active Substance: DEXAMETHASONE
     Indication: Plasma cell myeloma refractory
     Dosage: UNK (FIRST LINE TREATMENT)
     Route: 065
     Dates: start: 20200110, end: 20220501
  2. DEXAMETHASONE [Suspect]
     Active Substance: DEXAMETHASONE
     Dosage: UNK (SECOND LINE TREATMENT)
     Route: 065
     Dates: start: 20220501, end: 20220801
  3. DEXAMETHASONE [Suspect]
     Active Substance: DEXAMETHASONE
     Dosage: UNK (THIRD LINE TREATMENT)
     Route: 065
     Dates: start: 20220801, end: 20221101
  4. DEXAMETHASONE [Suspect]
     Active Substance: DEXAMETHASONE
     Dosage: UNK (SIXTH LINE TREATMENT)
     Route: 065
     Dates: start: 20230501, end: 20230601
  5. MELPHALAN [Suspect]
     Active Substance: MELPHALAN
     Indication: Plasma cell myeloma refractory
     Dosage: UNK (FIRST LINE TREATMENT)
     Route: 065
     Dates: start: 20200110, end: 20220501
  6. ISATUXIMAB [Suspect]
     Active Substance: ISATUXIMAB
     Indication: Plasma cell myeloma refractory
     Dosage: UNK (SECOND LINE TREATMENT)
     Route: 065
     Dates: start: 20220501, end: 20220801
  7. BORTEZOMIB [Suspect]
     Active Substance: BORTEZOMIB
     Indication: Plasma cell myeloma refractory
     Dosage: UNK (THIRD LINE TREATMENT)
     Route: 065
     Dates: start: 20220801, end: 20221101
  8. DOXORUBICIN [Suspect]
     Active Substance: DOXORUBICIN
     Indication: Plasma cell myeloma refractory
     Dosage: UNK (THIRD LINE TREATMENT)
     Route: 065
     Dates: start: 20220801, end: 20221101
  9. CYCLOPHOSPHAMIDE [Suspect]
     Active Substance: CYCLOPHOSPHAMIDE
     Indication: Plasma cell myeloma refractory
     Dosage: UNK (FIRST LINE TREATMENT)
     Route: 065
     Dates: start: 20200110, end: 20220501
  10. POMALIDOMIDE [Suspect]
     Active Substance: POMALIDOMIDE
     Indication: Plasma cell myeloma refractory
     Dosage: UNK (SECOND LINE TREATMENT)
     Route: 065
     Dates: start: 20220501, end: 20220801
  11. POMALIDOMIDE [Suspect]
     Active Substance: POMALIDOMIDE
     Dosage: UNK (SIXTH LINE TREATMENT (MOST RECENT LINE TREATMENT)
     Route: 065
     Dates: start: 20230501, end: 20230601
  12. CARFILZOMIB [Suspect]
     Active Substance: CARFILZOMIB
     Indication: Plasma cell myeloma refractory
     Dosage: UNK (FIRST LINE TREATMENT)
     Route: 065
     Dates: start: 20200110, end: 20220501
  13. CARFILZOMIB [Suspect]
     Active Substance: CARFILZOMIB
     Dosage: UNK (SIXTH LINE TREATMENT (MOST RECENT LINE TREATMENT)
     Route: 065
     Dates: start: 20230501, end: 20230601
  14. LENALIDOMIDE [Suspect]
     Active Substance: LENALIDOMIDE
     Indication: Plasma cell myeloma refractory
     Dosage: UNK (FIRST LINE TREATMENT)
     Route: 065
     Dates: start: 20200110, end: 20220501

REACTIONS (1)
  - Plasma cell myeloma [Unknown]
